FAERS Safety Report 17516880 (Version 6)
Quarter: 2021Q4

REPORT INFORMATION
  Report Type: Spontaneous
  Country: US (occurrence: US)
  Receive Date: 20200309
  Receipt Date: 20211105
  Transmission Date: 20220303
  Serious: Yes (Other)
  Sender: FDA-Public Use
  Company Number: US-GILEAD-2020-0453906

PATIENT
  Age: 59 Year
  Sex: Male
  Weight: 104.31 kg

DRUGS (33)
  1. TRUVADA [Suspect]
     Active Substance: EMTRICITABINE\TENOFOVIR DISOPROXIL FUMARATE
     Indication: HIV infection
     Dosage: UNK
     Route: 048
     Dates: start: 200112, end: 201603
  2. TRUVADA [Suspect]
     Active Substance: EMTRICITABINE\TENOFOVIR DISOPROXIL FUMARATE
     Dosage: UNK
     Route: 048
     Dates: start: 2009, end: 2018
  3. TRUVADA [Suspect]
     Active Substance: EMTRICITABINE\TENOFOVIR DISOPROXIL FUMARATE
     Dosage: UNK
     Route: 065
     Dates: start: 20061201, end: 20160423
  4. ATRIPLA [Suspect]
     Active Substance: EFAVIRENZ\EMTRICITABINE\TENOFOVIR DISOPROXIL FUMARATE
     Indication: HIV infection
     Route: 048
  5. BIKTARVY [Concomitant]
     Active Substance: BICTEGRAVIR SODIUM\EMTRICITABINE\TENOFOVIR ALAFENAMIDE FUMARATE
  6. ACETAMINOPHEN [Concomitant]
     Active Substance: ACETAMINOPHEN
  7. ACYCLOVIR [Concomitant]
     Active Substance: ACYCLOVIR
  8. AMOXICILLIN [Concomitant]
     Active Substance: AMOXICILLIN
  9. COZAAR [Concomitant]
     Active Substance: LOSARTAN POTASSIUM
  10. BENICAR [Concomitant]
     Active Substance: OLMESARTAN MEDOXOMIL
  11. AVAPRO [Concomitant]
     Active Substance: IRBESARTAN
  12. CANDESARTAN [Concomitant]
     Active Substance: CANDESARTAN
  13. DIOVAN [Concomitant]
     Active Substance: VALSARTAN
  14. ASPIRIN [Concomitant]
     Active Substance: ASPIRIN
  15. BACTRIM [Concomitant]
     Active Substance: SULFAMETHOXAZOLE\TRIMETHOPRIM
  16. IBUPROFEN [Concomitant]
     Active Substance: IBUPROFEN
  17. NAPROXEN [Concomitant]
     Active Substance: NAPROXEN
  18. DICLOFENAC [Concomitant]
     Active Substance: DICLOFENAC
  19. OMEPRAZOLE [Concomitant]
     Active Substance: OMEPRAZOLE
  20. PREDNISONE [Concomitant]
     Active Substance: PREDNISONE
  21. LIPIODOL [Concomitant]
     Active Substance: ETHIODIZED OIL
  22. IODIPAMIDE [Concomitant]
     Active Substance: IODIPAMIDE
  23. CONRAY (M I) [Concomitant]
  24. CYSTOGRAFIN [Concomitant]
     Active Substance: DIATRIZOATE MEGLUMINE
  25. GASTROGRAFIN [Concomitant]
     Active Substance: DIATRIZOATE MEGLUMINE\DIATRIZOATE SODIUM
  26. GADOBUTROL [Concomitant]
     Active Substance: GADOBUTROL
  27. GADODIAMIDE [Concomitant]
     Active Substance: GADODIAMIDE
  28. GADOTERIDOL [Concomitant]
     Active Substance: GADOTERIDOL
  29. PROZAC [Concomitant]
     Active Substance: FLUOXETINE HYDROCHLORIDE
  30. PAXIL [Concomitant]
     Active Substance: PAROXETINE HYDROCHLORIDE
  31. ZOLOFT [Concomitant]
     Active Substance: SERTRALINE HYDROCHLORIDE
  32. METHYLPREDNISOLONE [Concomitant]
     Active Substance: METHYLPREDNISOLONE
  33. LISINOPRIL [Concomitant]
     Active Substance: LISINOPRIL

REACTIONS (12)
  - Osteonecrosis [Recovered/Resolved]
  - Osteoporosis [Unknown]
  - Osteonecrosis [Unknown]
  - Bone loss [Unknown]
  - Pain [Unknown]
  - Emotional distress [Unknown]
  - Economic problem [Unknown]
  - Gait inability [Not Recovered/Not Resolved]
  - Decreased activity [Not Recovered/Not Resolved]
  - Dysstasia [Not Recovered/Not Resolved]
  - Depression [Not Recovered/Not Resolved]
  - Rash [Unknown]

NARRATIVE: CASE EVENT DATE: 20150101
